FAERS Safety Report 4378729-3 (Version None)
Quarter: 2004Q2

REPORT INFORMATION
  Report Type: 
  Country: None (occurrence: None)
  Receive Date: 20040616
  Receipt Date: 20040609
  Transmission Date: 20050107
  Serious: Yes (Other)
  Sender: FDA-Public Use
  Company Number: PHBS2004JP07624

PATIENT

DRUGS (3)
  1. DIOVAN [Suspect]
     Route: 048
  2. CALCIUM CHANNEL BLOCKERS [Concomitant]
  3. ANTIHYPERTENSIVES [Concomitant]
     Route: 048

REACTIONS (2)
  - MYALGIA [None]
  - RHABDOMYOLYSIS [None]
